FAERS Safety Report 4618932-8 (Version None)
Quarter: 2005Q2

REPORT INFORMATION
  Report Type: 
  Country: None (occurrence: None)
  Receive Date: 20050302
  Receipt Date: 20040712
  Transmission Date: 20051028
  Serious: Yes (Life-Threatening)
  Sender: FDA-Public Use
  Company Number: 1199713742

PATIENT
  Age: 83 Year
  Sex: Male
  Weight: 66 kg

DRUGS (17)
  1. APROTININ BOVINE [Suspect]
     Indication: AORTIC VALVE REPAIR
     Dosage: 1 ML, TOTAL DAILY, INTRAVENOUS; 400 ML, TOTAL DAILY, INTRAVENOUS
     Route: 042
     Dates: start: 19970820
  2. APROTININ BOVINE [Suspect]
     Indication: CARDIAC OPERATION
     Dosage: 1 ML, TOTAL DAILY, INTRAVENOUS; 400 ML, TOTAL DAILY, INTRAVENOUS
     Route: 042
     Dates: start: 19970820
  3. APROTININ BOVINE [Suspect]
     Indication: MITRAL VALVE REPAIR
     Dosage: 1 ML, TOTAL DAILY, INTRAVENOUS; 400 ML, TOTAL DAILY, INTRAVENOUS
     Route: 042
     Dates: start: 19970820
  4. APROTININ BOVINE [Suspect]
     Indication: AORTIC VALVE REPAIR
     Dosage: 1 ML, TOTAL DAILY, INTRAVENOUS; 400 ML, TOTAL DAILY, INTRAVENOUS
     Route: 042
     Dates: start: 19970820
  5. APROTININ BOVINE [Suspect]
     Indication: CARDIAC OPERATION
     Dosage: 1 ML, TOTAL DAILY, INTRAVENOUS; 400 ML, TOTAL DAILY, INTRAVENOUS
     Route: 042
     Dates: start: 19970820
  6. APROTININ BOVINE [Suspect]
     Indication: MITRAL VALVE REPAIR
     Dosage: 1 ML, TOTAL DAILY, INTRAVENOUS; 400 ML, TOTAL DAILY, INTRAVENOUS
     Route: 042
     Dates: start: 19970820
  7. MIDAZOLAM [Concomitant]
  8. FENTANYL [Concomitant]
  9. ASPIRIN [Concomitant]
  10. FUROSEMIDE [Concomitant]
  11. PANCURONIUM [Concomitant]
  12. FAMOTIDINE [Concomitant]
  13. DIPHENHYDRAMINE HCL [Concomitant]
  14. DOCURATE [Concomitant]
  15. OMEPRAZOLE [Concomitant]
  16. POTASSIUM CHLORIDE [Concomitant]
  17. TIMOLOL MALEATE [Concomitant]

REACTIONS (3)
  - ANAPHYLACTIC REACTION [None]
  - BRADYCARDIA [None]
  - HYPOTENSION [None]
